FAERS Safety Report 26133892 (Version 2)
Quarter: 2025Q4

REPORT INFORMATION
  Report Type: Spontaneous
  Country: US (occurrence: US)
  Receive Date: 20251209
  Receipt Date: 20251229
  Transmission Date: 20260118
  Serious: Yes (Death, Life-Threatening, Hospitalization, Other)
  Sender: AUROBINDO
  Company Number: US-MLMSERVICE-20251119-PI718350-00327-1

PATIENT
  Age: 19 Year
  Sex: Male

DRUGS (5)
  1. DIVALPROEX SODIUM [Suspect]
     Active Substance: DIVALPROEX SODIUM
     Indication: Mania
     Dosage: 250 MILLIGRAM, TWO TIMES A DAY
     Route: 065
  2. DIVALPROEX SODIUM [Suspect]
     Active Substance: DIVALPROEX SODIUM
     Indication: Psychotic disorder
  3. ARIPIPRAZOLE [Concomitant]
     Active Substance: ARIPIPRAZOLE
     Indication: Mania
     Dosage: 15 MILLIGRAM, ONCE A DAY
     Route: 065
  4. ARIPIPRAZOLE [Concomitant]
     Active Substance: ARIPIPRAZOLE
     Indication: Psychotic disorder
  5. LITHIUM [Concomitant]
     Active Substance: LITHIUM
     Indication: Product used for unknown indication
     Dosage: UNK
     Route: 065

REACTIONS (6)
  - Brain herniation [Fatal]
  - Brain oedema [Not Recovered/Not Resolved]
  - Ornithine transcarbamoylase deficiency [Not Recovered/Not Resolved]
  - Unmasking of previously unidentified disease [Not Recovered/Not Resolved]
  - Seizure [Not Recovered/Not Resolved]
  - Hyperammonaemia [Not Recovered/Not Resolved]
